FAERS Safety Report 18496023 (Version 1)
Quarter: 2020Q4

REPORT INFORMATION
  Report Type: Spontaneous
  Country: CA (occurrence: CA)
  Receive Date: 20201112
  Receipt Date: 20201112
  Transmission Date: 20210114
  Serious: Yes (Other)
  Sender: FDA-Public Use
  Company Number: CA-SAMSUNG BIOEPIS-SB-2020-33850

PATIENT
  Age: 38 Year
  Sex: Female
  Weight: 80 kg

DRUGS (4)
  1. INFLIXIMAB [Suspect]
     Active Substance: INFLIXIMAB
     Indication: COLITIS ULCERATIVE
     Route: 042
  2. MEZAVANT [Concomitant]
     Active Substance: MESALAMINE
     Indication: PRODUCT USED FOR UNKNOWN INDICATION
     Dosage: DELAYED AND EXTENDED RELEASE
     Route: 065
  3. CORTIMENT [Concomitant]
     Indication: PRODUCT USED FOR UNKNOWN INDICATION
     Dosage: DELAYED AND EXTENDED RELEASE
     Route: 065
  4. METHOTREXATE. [Concomitant]
     Active Substance: METHOTREXATE
     Indication: PRODUCT USED FOR UNKNOWN INDICATION
     Dosage: UNKNOWN
     Route: 065

REACTIONS (9)
  - Limb injury [Unknown]
  - Off label use [Unknown]
  - Condition aggravated [Unknown]
  - Drug level below therapeutic [Unknown]
  - Intentional product use issue [Unknown]
  - Onychomadesis [Unknown]
  - Inappropriate schedule of product administration [Unknown]
  - Oropharyngeal pain [Unknown]
  - Treatment failure [Unknown]
